FAERS Safety Report 6521637-X (Version None)
Quarter: 2009Q4

REPORT INFORMATION
  Report Type: 
  Country: None (occurrence: None)
  Receive Date: 20091230
  Receipt Date: 20091216
  Transmission Date: 20100525
  Serious: No
  Sender: FDA-Public Use
  Company Number: JP-PFIZER INC-2009293206

PATIENT
  Sex: Male
  Weight: 50 kg

DRUGS (6)
  1. XALATAN [Suspect]
     Indication: GLAUCOMA
     Dosage: UNK
     Dates: start: 20061017
  2. KETAS [Suspect]
     Indication: HYPERSENSITIVITY
     Route: 047
  3. PATANOL [Concomitant]
     Indication: HYPERSENSITIVITY
     Route: 047
  4. MEVALOTIN [Concomitant]
     Indication: HYPERLIPIDAEMIA
     Dosage: UNK
     Route: 048
     Dates: start: 20061101
  5. BUFFERIN [Concomitant]
     Dosage: UNK
     Route: 048
     Dates: start: 20061101
  6. OMEPRAL [Concomitant]
     Indication: REFLUX OESOPHAGITIS
     Dosage: UNK
     Route: 048
     Dates: start: 20070601

REACTIONS (2)
  - COUGH [None]
  - MUSCULOSKELETAL CHEST PAIN [None]
